FAERS Safety Report 26194752 (Version 2)
Quarter: 2025Q4

REPORT INFORMATION
  Report Type: Spontaneous
  Country: US (occurrence: US)
  Receive Date: 20251224
  Receipt Date: 20251229
  Transmission Date: 20260117
  Serious: No
  Sender: ELI LILLY AND COMPANY
  Company Number: US-ELI_LILLY_AND_COMPANY-US202512011485

PATIENT
  Age: 62 Year
  Sex: Female

DRUGS (10)
  1. MOUNJARO [Suspect]
     Active Substance: TIRZEPATIDE
     Indication: Weight control
     Dosage: 7.5 MG, UNKNOWN
     Route: 058
  2. MOUNJARO [Suspect]
     Active Substance: TIRZEPATIDE
     Indication: Weight control
     Dosage: 7.5 MG, UNKNOWN
     Route: 058
  3. MOUNJARO [Suspect]
     Active Substance: TIRZEPATIDE
     Indication: Weight control
     Dosage: 7.5 MG, UNKNOWN
     Route: 058
  4. MOUNJARO [Suspect]
     Active Substance: TIRZEPATIDE
     Indication: Weight control
     Dosage: 7.5 MG, UNKNOWN
     Route: 058
  5. MOUNJARO [Suspect]
     Active Substance: TIRZEPATIDE
     Indication: Weight control
     Dosage: 7.5 MG, UNKNOWN
     Route: 058
  6. MOUNJARO [Suspect]
     Active Substance: TIRZEPATIDE
     Indication: Positive airway pressure therapy
  7. MOUNJARO [Suspect]
     Active Substance: TIRZEPATIDE
     Indication: Positive airway pressure therapy
  8. MOUNJARO [Suspect]
     Active Substance: TIRZEPATIDE
     Indication: Positive airway pressure therapy
  9. MOUNJARO [Suspect]
     Active Substance: TIRZEPATIDE
     Indication: Positive airway pressure therapy
  10. MOUNJARO [Suspect]
     Active Substance: TIRZEPATIDE
     Indication: Positive airway pressure therapy

REACTIONS (3)
  - Incorrect dose administered [Unknown]
  - Product administered at inappropriate site [Unknown]
  - Wrong technique in product usage process [Unknown]

NARRATIVE: CASE EVENT DATE: 20251208
